FAERS Safety Report 8212046-6 (Version None)
Quarter: 2012Q1

REPORT INFORMATION
  Report Type: 
  Country: None (occurrence: None)
  Receive Date: 20120315
  Receipt Date: 20120301
  Transmission Date: 20120608
  Serious: Yes (Other)
  Sender: FDA-Public Use
  Company Number: PHHY2011JP097303

PATIENT
  Age: 33 Year
  Sex: Female

DRUGS (5)
  1. CORTICOSTEROID NOS [Concomitant]
     Dosage: UNK UKN, UNK
  2. NEORAL [Suspect]
     Dosage: 120 MG, DAILY
     Route: 048
     Dates: start: 20101104
  3. METHOTREXATE [Concomitant]
     Dosage: UNK UKN, UNK
  4. NEORAL [Suspect]
     Indication: PROPHYLAXIS AGAINST GRAFT VERSUS HOST DISEASE
     Dosage: 100 MG, DAILY
     Route: 048
     Dates: start: 20101019, end: 20101103
  5. METHYLPREDNISOLONE [Concomitant]
     Indication: PROPHYLAXIS AGAINST GRAFT VERSUS HOST DISEASE
     Route: 048

REACTIONS (4)
  - POST TRANSPLANT DISTAL LIMB SYNDROME [None]
  - GRAFT VERSUS HOST DISEASE IN INTESTINE [None]
  - GRAFT VERSUS HOST DISEASE IN SKIN [None]
  - PAIN IN EXTREMITY [None]
